FAERS Safety Report 18468774 (Version 1)
Quarter: 2020Q4

REPORT INFORMATION
  Report Type: Spontaneous
  Country: US (occurrence: US)
  Receive Date: 20201105
  Receipt Date: 20201105
  Transmission Date: 20210114
  Serious: Yes (Other)
  Sender: FDA-Public Use
  Company Number: None

PATIENT
  Age: 82 Year
  Sex: Male
  Weight: 98 kg

DRUGS (12)
  1. SERTRALINE [Concomitant]
     Active Substance: SERTRALINE HYDROCHLORIDE
     Dates: start: 20200716, end: 20200722
  2. MENTHOL/METHYL SALICYLATE [Concomitant]
     Dates: start: 20200717, end: 20200718
  3. PIPERACILLIN/TAZOBACTAM [Concomitant]
     Active Substance: PIPERACILLIN SODIUM\TAZOBACTAM SODIUM
     Dates: start: 20200716, end: 20200725
  4. ALBUTEROL HFA INHALER [Concomitant]
     Active Substance: ALBUTEROL
     Dates: start: 20200713, end: 20200730
  5. RIVASTIGMINE PATCH [Concomitant]
     Active Substance: RIVASTIGMINE
     Dates: start: 20200716, end: 20200811
  6. RIVAROXABAN [Concomitant]
     Active Substance: RIVAROXABAN
     Dates: start: 20200713, end: 20200722
  7. MEMANTINE. [Concomitant]
     Active Substance: MEMANTINE
     Dates: start: 20200715, end: 20200722
  8. DEXAMETHASONE. [Concomitant]
     Active Substance: DEXAMETHASONE
     Dates: start: 20200713, end: 20200719
  9. REMDESIVIR. [Suspect]
     Active Substance: REMDESIVIR
     Indication: COVID-19
  10. LEVOTHYROXINE. [Concomitant]
     Active Substance: LEVOTHYROXINE
     Dates: start: 20200716, end: 20200723
  11. FUROSEMIDE. [Concomitant]
     Active Substance: FUROSEMIDE
     Dates: start: 20200717, end: 20200718
  12. IBUPROFEN. [Concomitant]
     Active Substance: IBUPROFEN
     Dates: start: 20200717, end: 20200717

REACTIONS (2)
  - Alanine aminotransferase increased [None]
  - Aspartate aminotransferase increased [None]

NARRATIVE: CASE EVENT DATE: 20200716
